FAERS Safety Report 12627183 (Version 1)
Quarter: 2016Q3

REPORT INFORMATION
  Report Type: Spontaneous
  Country: US (occurrence: US)
  Receive Date: 20160805
  Receipt Date: 20160805
  Transmission Date: 20161109
  Serious: Yes (Hospitalization, Disabling, Other)
  Sender: FDA-Public Use
  Company Number: US-SAOL THERAPEUTICS-2016SAO00033

PATIENT
  Age: 46 Year
  Sex: Male
  Weight: 102.4 kg

DRUGS (6)
  1. BACLOFEN. [Suspect]
     Active Substance: BACLOFEN
     Indication: MUSCLE SPASTICITY
     Dosage: 24 ?G, \DAY
  2. BACLOFEN. [Suspect]
     Active Substance: BACLOFEN
     Indication: MULTIPLE SCLEROSIS
  3. BACLOFEN. [Suspect]
     Active Substance: BACLOFEN
     Indication: PAIN
     Dosage: 20 ?G, 1X/DAY
     Route: 037
     Dates: start: 20160418
  4. DEXILANT [Concomitant]
     Active Substance: DEXLANSOPRAZOLE
  5. ULORIC [Concomitant]
     Active Substance: FEBUXOSTAT
  6. TYSABRI [Concomitant]
     Active Substance: NATALIZUMAB

REACTIONS (5)
  - Activities of daily living impaired [Not Recovered/Not Resolved]
  - Implant site extravasation [Not Recovered/Not Resolved]
  - Thrombosis [Not Recovered/Not Resolved]
  - Cerebrospinal fluid leakage [Unknown]
  - Mobility decreased [Not Recovered/Not Resolved]

NARRATIVE: CASE EVENT DATE: 2016
